FAERS Safety Report 6402360-9 (Version None)
Quarter: 2009Q4

REPORT INFORMATION
  Report Type: 
  Country: None (occurrence: None)
  Receive Date: 20091013
  Receipt Date: 20090928
  Transmission Date: 20100525
  Serious: Yes (Hospitalization)
  Sender: FDA-Public Use
  Company Number: 2009000702

PATIENT
  Age: 52 Year
  Sex: Female

DRUGS (9)
  1. ERLOTINIB HYDROCHLORIDE [Suspect]
     Indication: NEOPLASM MALIGNANT
     Dosage: (100 MG, QD), ORAL
     Route: 048
     Dates: start: 20090209
  2. RO4858696 [Suspect]
     Indication: NEOPLASM MALIGNANT
     Dosage: (217 MG, QW), INTRAVENEOUS
     Dates: start: 20090209
  3. GEMCITABINE [Suspect]
     Indication: NEOPLASM MALIGNANT
     Dosage: (1800 MG, QW), INTRAVENOUS
     Route: 042
     Dates: start: 20090209
  4. AMBIEN [Concomitant]
  5. COMPAZINE [Concomitant]
  6. HYDROMORPHONE HCL [Concomitant]
  7. METHADONE HCL [Concomitant]
  8. DOCUSATE SODIUM (DOCUSATE SODIUM) [Concomitant]
  9. GABAPENTIN [Concomitant]

REACTIONS (3)
  - DEEP VEIN THROMBOSIS [None]
  - HAEMOGLOBIN DECREASED [None]
  - THROMBOCYTOPENIA [None]
